FAERS Safety Report 21371200 (Version 2)
Quarter: 2023Q1

REPORT INFORMATION
  Report Type: Report from Study
  Country: BR (occurrence: BR)
  Receive Date: 20220923
  Receipt Date: 20230309
  Transmission Date: 20230418
  Serious: Yes (Other)
  Sender: FDA-Public Use
  Company Number: BR-JNJFOC-20200104571

PATIENT
  Age: 40 Year
  Sex: Female
  Weight: 59 kg

DRUGS (12)
  1. INFLIXIMAB [Suspect]
     Active Substance: INFLIXIMAB
     Indication: Crohn^s disease
     Dosage: 4 VIALS
     Route: 041
     Dates: start: 20170110
  2. INFLIXIMAB [Suspect]
     Active Substance: INFLIXIMAB
     Dosage: 4 VIALS
     Route: 041
     Dates: start: 20190426
  3. INFLIXIMAB [Suspect]
     Active Substance: INFLIXIMAB
     Indication: Crohn^s disease
     Route: 041
     Dates: start: 20170110
  4. INFLIXIMAB [Suspect]
     Active Substance: INFLIXIMAB
     Route: 041
  5. METICORTEN [Suspect]
     Active Substance: PREDNISONE
     Indication: Gastrointestinal inflammation
     Route: 065
  6. LIPIDIL [Concomitant]
     Active Substance: FENOFIBRATE
     Indication: Blood triglycerides increased
  7. AMITRIPTYLINE [Concomitant]
     Active Substance: AMITRIPTYLINE
     Indication: Sleep disorder
  8. CARBOLIM [Concomitant]
     Indication: Sleep disorder
  9. IMOVANE [Concomitant]
     Active Substance: ZOPICLONE
     Indication: Sleep disorder
  10. DULOXETINE HYDROCHLORIDE [Concomitant]
     Active Substance: DULOXETINE HYDROCHLORIDE
     Indication: Sleep disorder
  11. RIVOTRIL [Concomitant]
     Active Substance: CLONAZEPAM
     Indication: Sleep disorder
     Dosage: 20 DROPS
  12. FERROUS SULFATE [Concomitant]
     Active Substance: FERROUS SULFATE
     Indication: Anaemia

REACTIONS (14)
  - Uterine cancer [Recovered/Resolved]
  - Haemorrhage [Unknown]
  - Uterine leiomyoma [Unknown]
  - Cholelithiasis [Recovered/Resolved]
  - Gastrointestinal inflammation [Unknown]
  - Female genital tract fistula [Recovered/Resolved]
  - Weight increased [Unknown]
  - Decreased appetite [Unknown]
  - Fistula inflammation [Unknown]
  - Vaginal fistula [Unknown]
  - Stenosis [Unknown]
  - Fatigue [Unknown]
  - Inappropriate schedule of product administration [Unknown]
  - Off label use [Unknown]

NARRATIVE: CASE EVENT DATE: 20190107
